FAERS Safety Report 12697387 (Version 1)
Quarter: 2016Q3

REPORT INFORMATION
  Report Type: Spontaneous
  Country: US (occurrence: US)
  Receive Date: 20160830
  Receipt Date: 20160830
  Transmission Date: 20161109
  Serious: No
  Sender: FDA-Public Use
  Company Number: US-PFIZER INC-2016388687

PATIENT
  Age: 13 Year
  Sex: Male

DRUGS (1)
  1. GENOTROPIN [Suspect]
     Active Substance: SOMATROPIN
     Indication: BODY HEIGHT BELOW NORMAL
     Dosage: 1.8 MG, 1X/DAY
     Route: 058
     Dates: start: 20150627

REACTIONS (3)
  - Anger [Recovering/Resolving]
  - Abnormal behaviour [Recovering/Resolving]
  - Emotional disorder [Recovering/Resolving]
